FAERS Safety Report 8227776-X (Version None)
Quarter: 2012Q1

REPORT INFORMATION
  Report Type: 
  Country: None (occurrence: None)
  Receive Date: 20120322
  Receipt Date: 20120316
  Transmission Date: 20120608
  Serious: Yes (Hospitalization, Other)
  Sender: FDA-Public Use
  Company Number: US-SANOFI-AVENTIS-2012SA018718

PATIENT
  Age: 49 Year
  Sex: Male

DRUGS (1)
  1. UROXATRAL [Suspect]
     Route: 048
     Dates: start: 20110101, end: 20110420

REACTIONS (16)
  - MUSCLE DISORDER [None]
  - ERECTILE DYSFUNCTION [None]
  - COUGH [None]
  - ABASIA [None]
  - URINARY INCONTINENCE [None]
  - THROAT TIGHTNESS [None]
  - DYSPHAGIA [None]
  - FAECAL INCONTINENCE [None]
  - DIZZINESS [None]
  - THROAT IRRITATION [None]
  - MUSCULAR WEAKNESS [None]
  - TREMOR [None]
  - LIBIDO DECREASED [None]
  - GENITAL DISCHARGE [None]
  - FATIGUE [None]
  - GAIT DISTURBANCE [None]
